FAERS Safety Report 25907088 (Version 2)
Quarter: 2025Q4

REPORT INFORMATION
  Report Type: Spontaneous
  Country: EU (occurrence: EU)
  Receive Date: 20251010
  Receipt Date: 20251017
  Transmission Date: 20260118
  Serious: Yes (Hospitalization, Disabling)
  Sender: GALPHARM INTERNATIONAL
  Company Number: EU-MLMSERVICE-20250922-PI653984-00031-1

PATIENT
  Age: 68 Year
  Sex: Female

DRUGS (1)
  1. OMEPRAZOLE MAGNESIUM [Suspect]
     Active Substance: OMEPRAZOLE MAGNESIUM
     Indication: Product used for unknown indication
     Dosage: 40 MG, Q12HRS
     Route: 048
     Dates: start: 2014, end: 2022

REACTIONS (3)
  - Magnesium deficiency [Recovered/Resolved]
  - Cerebellar syndrome [Recovering/Resolving]
  - Hypokalaemia [Recovered/Resolved]

NARRATIVE: CASE EVENT DATE: 20220401
